FAERS Safety Report 7178088-7 (Version None)
Quarter: 2010Q4

REPORT INFORMATION
  Report Type: 
  Country: None (occurrence: None)
  Receive Date: 20101220
  Receipt Date: 20101214
  Transmission Date: 20110411
  Serious: Yes (Death, Hospitalization)
  Sender: FDA-Public Use
  Company Number: A0899727A

PATIENT
  Sex: Female

DRUGS (1)
  1. HYCAMTIN [Suspect]
     Dosage: 1.5MG PER DAY
     Route: 042
     Dates: start: 20101101, end: 20101105

REACTIONS (3)
  - DEATH [None]
  - NEUTROPENIA [None]
  - SEPSIS [None]
